FAERS Safety Report 10142940 (Version 2)
Quarter: 2014Q2

REPORT INFORMATION
  Report Type: Spontaneous
  Country: US (occurrence: US)
  Receive Date: 20140430
  Receipt Date: 20140528
  Transmission Date: 20141212
  Serious: Yes (Other)
  Sender: FDA-Public Use
  Company Number: US-BAYER-2014-063486

PATIENT
  Age: 33 Year
  Sex: Female
  Weight: 108.84 kg

DRUGS (16)
  1. OCELLA [Suspect]
     Dosage: UNK
     Dates: start: 200906, end: 200910
  2. YASMIN [Suspect]
     Dosage: UNK
     Dates: start: 200906, end: 200910
  3. PEPTO-BISMOL [Concomitant]
  4. ROXICET [Concomitant]
     Dosage: 5/500MG Q 4 HOURS P.R.N.
  5. DESYREL [Concomitant]
     Dosage: 50 MG, Q.H.S. P.R.N
  6. VICODIN [Concomitant]
  7. LORCET [Concomitant]
     Dosage: 5/500MG 4-6 HOURS P.R.N.
  8. TAXOL [Concomitant]
  9. CARBOPLATIN [Concomitant]
  10. AMPICILLIN [Concomitant]
     Dosage: 250 MG, -ONE C (INTERPRETED AS CAPSULE) QID FOR 10 DAYS
     Route: 048
  11. ZANTAC [Concomitant]
     Dosage: 150 MG, BID
  12. PROCHLORPERAZINE [Concomitant]
     Dosage: 10 MG, ONE T (INTERPRETED AS TABLET) Q (INTERPRETED EVERY) 6 H (INTERPRETED AS HOURS)
     Route: 048
  13. ZOFRAN [Concomitant]
     Dosage: PNR
  14. COMPAZINE [Concomitant]
     Dosage: PNR
  15. VITAMIN B6 [Concomitant]
     Dosage: 100 MG, ONCE DAILY
  16. ALEVE [NAPROXEN SODIUM,PSEUDOEPHEDRINE HYDROCHLORIDE] [Concomitant]
     Dosage: UNK UNK, PRN

REACTIONS (7)
  - Pulmonary embolism [Recovered/Resolved]
  - Injury [Recovered/Resolved]
  - Pain [None]
  - General physical health deterioration [Recovered/Resolved]
  - Anxiety [None]
  - Emotional distress [None]
  - Pain [Recovered/Resolved]
